FAERS Safety Report 17585274 (Version 2)
Quarter: 2020Q3

REPORT INFORMATION
  Report Type: Spontaneous
  Country: US (occurrence: US)
  Receive Date: 20200326
  Receipt Date: 20200701
  Transmission Date: 20201102
  Serious: No
  Sender: FDA-Public Use
  Company Number: US-BAYER-2020-050796

PATIENT
  Age: 67 Year
  Sex: Female

DRUGS (2)
  1. STIVARGA [Suspect]
     Active Substance: REGORAFENIB
     Indication: COLON CANCER
     Dosage: DAILY DOSE 160 MG 21 DAYS AND 7 DAYS OFF
     Route: 048
     Dates: start: 2020, end: 2020
  2. STIVARGA [Suspect]
     Active Substance: REGORAFENIB
     Indication: COLON CANCER
     Dosage: DAILY DOSE 160 MG 21 DAYS AND 7 DAYS OFF
     Route: 048
     Dates: start: 20200302, end: 2020

REACTIONS (2)
  - Blood pressure abnormal [None]
  - Diarrhoea [Unknown]
